FAERS Safety Report 8576809-X (Version None)
Quarter: 2012Q3

REPORT INFORMATION
  Report Type: 
  Country: None (occurrence: None)
  Receive Date: 20120807
  Receipt Date: 20120802
  Transmission Date: 20120928
  Serious: Yes (Hospitalization)
  Sender: FDA-Public Use
  Company Number: US-AMGEN-USACT2010005816

PATIENT
  Age: 64 Year
  Sex: Female

DRUGS (18)
  1. SYNTHROID [Concomitant]
     Dosage: 200 A?G, UNK
     Route: 048
  2. INSULIN [Concomitant]
     Dosage: UNK UNK, PRN
  3. LEVOXYL [Concomitant]
  4. NORVASC [Concomitant]
     Dosage: 10 MG, QD
  5. NOVOLOG [Concomitant]
     Dosage: UNK UNK, TID
  6. VITAMIN C                          /00008001/ [Concomitant]
  7. TYLENOL (CAPLET) [Concomitant]
     Dosage: UNK UNK, PRN
  8. LACTOBACILLUS ACIDOPHILUS [Suspect]
  9. DUONEB [Concomitant]
  10. LEVAQUIN [Concomitant]
     Dosage: 500 MG, QD
  11. AVAPRO [Concomitant]
  12. NEPRO [Concomitant]
  13. CINNAMON [Concomitant]
     Dosage: UNK UNK, QD
  14. CINACALCET HYDROCHLORIDE [Suspect]
     Indication: HYPERPARATHYROIDISM SECONDARY
     Dosage: UNK
     Dates: start: 20071024
  15. RENAGEL [Concomitant]
     Dosage: 800 MG, TID
  16. SENOKOT [Concomitant]
     Dosage: 30 MG, UNK
  17. FLONASE [Concomitant]
     Route: 045
  18. COLACE [Concomitant]

REACTIONS (2)
  - GASTROENTERITIS [None]
  - PLEURAL EFFUSION [None]
